FAERS Safety Report 4925911-X (Version None)
Quarter: 2006Q1

REPORT INFORMATION
  Report Type: 
  Country: None (occurrence: None)
  Receive Date: 20060228
  Receipt Date: 20050412
  Transmission Date: 20060701
  Serious: Yes (Other)
  Sender: FDA-Public Use
  Company Number: US-GLAXOSMITHKLINE-A0554024A

PATIENT
  Sex: Male

DRUGS (3)
  1. LAMICTAL [Suspect]
     Dosage: 2.5MG UNKNOWN
     Route: 048
  2. TEGRETOL [Concomitant]
  3. DEPAKOTE [Concomitant]

REACTIONS (4)
  - ANTICONVULSANT DRUG LEVEL BELOW THERAPEUTIC [None]
  - CONVULSION [None]
  - DRUG INEFFECTIVE [None]
  - DRUG INTERACTION [None]
